FAERS Safety Report 8301034-7 (Version None)
Quarter: 2012Q2

REPORT INFORMATION
  Report Type: 
  Country: None (occurrence: None)
  Receive Date: 20120420
  Receipt Date: 20120418
  Transmission Date: 20120825
  Serious: Yes (Hospitalization, Other)
  Sender: FDA-Public Use
  Company Number: JP-ABBOTT-11P-087-0865193-00

PATIENT
  Sex: Female
  Weight: 47 kg

DRUGS (11)
  1. REBAMIPIDE [Concomitant]
     Indication: GASTRITIS
     Route: 048
  2. METHOTREXATE [Concomitant]
     Indication: RHEUMATOID ARTHRITIS
     Dates: start: 20110620, end: 20110731
  3. LANSOPRAZOLE [Concomitant]
     Indication: GASTRITIS
     Route: 048
     Dates: end: 20111014
  4. OLOPATADINE HCL [Concomitant]
     Indication: RHINITIS ALLERGIC
     Route: 048
     Dates: end: 20111014
  5. ADALIMUMAB [Suspect]
     Indication: RHEUMATOID ARTHRITIS
     Route: 058
     Dates: start: 20110901, end: 20111001
  6. ADALIMUMAB [Suspect]
     Indication: JUVENILE ARTHRITIS
  7. ISONIAZID [Concomitant]
     Indication: ANTIBIOTIC PROPHYLAXIS
     Route: 048
     Dates: start: 20110917, end: 20111014
  8. METHOTREXATE [Concomitant]
     Dates: start: 20110801, end: 20111014
  9. PREDNISOLONE [Concomitant]
     Indication: RHEUMATOID ARTHRITIS
     Route: 048
     Dates: start: 20100305, end: 20101122
  10. PREDNISOLONE [Concomitant]
     Route: 048
     Dates: start: 20101123, end: 20111014
  11. FOLIC ACID [Concomitant]
     Indication: VITAMIN SUPPLEMENTATION
     Route: 048
     Dates: start: 20110620, end: 20111014

REACTIONS (2)
  - HEPATIC FUNCTION ABNORMAL [None]
  - JUVENILE ARTHRITIS [None]
